FAERS Safety Report 5456823-3 (Version None)
Quarter: 2007Q3

REPORT INFORMATION
  Report Type: 
  Country: None (occurrence: None)
  Receive Date: 20070918
  Receipt Date: 20070228
  Transmission Date: 20080115
  Serious: Yes (Other)
  Sender: FDA-Public Use
  Company Number: US-ASTRAZENECA-2006UW26156

PATIENT
  Sex: Male
  Weight: 120.5 kg

DRUGS (10)
  1. SEROQUEL [Suspect]
     Indication: HALLUCINATION, AUDITORY
     Dosage: 200 TO 300 MG
     Route: 048
     Dates: start: 20050101
  2. ABILIFY [Concomitant]
  3. GEODON [Concomitant]
  4. HALDOL [Concomitant]
  5. RISPERDAL [Concomitant]
  6. THORAZINE [Concomitant]
  7. OLANZAPINE [Concomitant]
  8. METHAMPHETAMINES [Concomitant]
  9. COCAINE [Concomitant]
  10. MARIJUANA [Concomitant]

REACTIONS (3)
  - DIABETES MELLITUS [None]
  - NEUROLEPTIC MALIGNANT SYNDROME [None]
  - TARDIVE DYSKINESIA [None]
